FAERS Safety Report 19761635 (Version 1)
Quarter: 2021Q3

REPORT INFORMATION
  Report Type: Spontaneous
  Country: IN (occurrence: IN)
  Receive Date: 20210827
  Receipt Date: 20210827
  Transmission Date: 20211014
  Serious: Yes (Death, Other)
  Sender: FDA-Public Use
  Company Number: IN-PFIZER INC-202101062343

PATIENT
  Age: 56 Year
  Sex: Male

DRUGS (13)
  1. PIPERACILLIN/TAZOBACTAM [Suspect]
     Active Substance: PIPERACILLIN SODIUM\TAZOBACTAM SODIUM
     Indication: COVID-19
     Dosage: UNK
     Dates: start: 2020
  2. TOCILIZUMAB. [Suspect]
     Active Substance: TOCILIZUMAB
     Indication: COVID-19
     Dosage: 8 MG/KG
     Route: 042
     Dates: start: 2020, end: 2020
  3. VITAMIN C + ZINC [Suspect]
     Active Substance: ASCORBIC ACID\ZINC
     Indication: COVID-19
     Dosage: UNK
     Dates: start: 2020
  4. VITAMIN C + ZINC [Suspect]
     Active Substance: ASCORBIC ACID\ZINC
     Indication: ACUTE RESPIRATORY DISTRESS SYNDROME
  5. AZITHROMYCIN ANHYDROUS. [Suspect]
     Active Substance: AZITHROMYCIN ANHYDROUS
     Indication: COVID-19
     Dosage: UNK
     Dates: start: 2020
  6. TOCILIZUMAB. [Suspect]
     Active Substance: TOCILIZUMAB
     Indication: ACUTE RESPIRATORY DISTRESS SYNDROME
  7. VITAMIN B COMPLEX NOS [Suspect]
     Active Substance: CYANOCOBALAMIN\PYRIDOXINE HYDROCHLORIDE\RIBOFLAVIN\SODIUM PANTOTHENATE\THIAMINE HYDROCHLORIDE\VITAMIN B COMPLEX
     Indication: COVID-19
     Dosage: UNK
     Dates: start: 2020
  8. METHYLPREDNISOLONE ACETATE. [Suspect]
     Active Substance: METHYLPREDNISOLONE ACETATE
     Indication: COVID-19
     Dosage: 80 MG, 2X/DAY
     Route: 042
     Dates: start: 2020, end: 2020
  9. METHYLPREDNISOLONE ACETATE. [Suspect]
     Active Substance: METHYLPREDNISOLONE ACETATE
     Indication: ACUTE RESPIRATORY DISTRESS SYNDROME
     Dosage: UNK (TAPERED DOSE)
     Dates: start: 2020, end: 2020
  10. AZITHROMYCIN ANHYDROUS. [Suspect]
     Active Substance: AZITHROMYCIN ANHYDROUS
     Indication: ACUTE RESPIRATORY DISTRESS SYNDROME
  11. HEPARIN [Suspect]
     Active Substance: HEPARIN SODIUM
     Indication: COVID-19
     Dosage: UNK
     Dates: start: 2020
  12. VITAMIN B COMPLEX NOS [Suspect]
     Active Substance: CYANOCOBALAMIN\PYRIDOXINE HYDROCHLORIDE\RIBOFLAVIN\SODIUM PANTOTHENATE\THIAMINE HYDROCHLORIDE\VITAMIN B COMPLEX
     Indication: ACUTE RESPIRATORY DISTRESS SYNDROME
  13. HEPARIN [Suspect]
     Active Substance: HEPARIN SODIUM
     Indication: ACUTE RESPIRATORY DISTRESS SYNDROME

REACTIONS (3)
  - Drug ineffective for unapproved indication [Unknown]
  - Opportunistic infection [Fatal]
  - Fungal sepsis [Unknown]

NARRATIVE: CASE EVENT DATE: 2020
